FAERS Safety Report 5713290-X (Version None)
Quarter: 2008Q2

REPORT INFORMATION
  Report Type: 
  Country: None (occurrence: None)
  Receive Date: 20080422
  Receipt Date: 20080416
  Transmission Date: 20081010
  Serious: Yes (Other)
  Sender: FDA-Public Use
  Company Number: US-PFIZER INC-2008033534

PATIENT
  Sex: Female

DRUGS (1)
  1. GEODON [Suspect]
     Indication: AGITATION
     Dosage: DAILY DOSE:20MG
     Route: 030

REACTIONS (3)
  - BRADYCARDIA [None]
  - DECREASED ACTIVITY [None]
  - DEPRESSION [None]
